FAERS Safety Report 4598744-4 (Version None)
Quarter: 2005Q1

REPORT INFORMATION
  Report Type: 
  Country: None (occurrence: None)
  Receive Date: 20050304
  Receipt Date: 20050228
  Transmission Date: 20050727
  Serious: Yes (Death, Hospitalization)
  Sender: FDA-Public Use
  Company Number: 395433

PATIENT
  Age: 89 Year
  Sex: Male

DRUGS (7)
  1. CARVEDILOL [Suspect]
     Indication: CARDIAC FAILURE CHRONIC
     Dosage: 10MG PER DAY
     Route: 048
     Dates: start: 20040730
  2. RENIVACE [Concomitant]
  3. RYTHMODAN [Concomitant]
  4. LOCHOL [Concomitant]
  5. ASPIRIN [Concomitant]
  6. SIGMART [Concomitant]
  7. MAGNESIUM OXIDE [Concomitant]

REACTIONS (2)
  - CARDIAC FAILURE [None]
  - INTERSTITIAL LUNG DISEASE [None]
